FAERS Safety Report 7519054-9 (Version None)
Quarter: 2011Q2

REPORT INFORMATION
  Report Type: 
  Country: None (occurrence: None)
  Receive Date: 20110602
  Receipt Date: 20110526
  Transmission Date: 20111010
  Serious: Yes (Death)
  Sender: FDA-Public Use
  Company Number: JP-ROCHE-571574

PATIENT
  Sex: Male

DRUGS (15)
  1. MYCOPHENOLATE MEFETIL [Suspect]
     Route: 048
     Dates: start: 20040122, end: 20040223
  2. PROGRAF [Suspect]
     Indication: PROPHYLAXIS AGAINST TRANSPLANT REJECTION
     Dosage: DOSE FORM : PERORAL AGENT NOTE: 114 MG
     Route: 048
  3. SILECE [Concomitant]
     Route: 048
     Dates: end: 20050306
  4. MYCOPHENOLATE MEFETIL [Suspect]
     Route: 048
     Dates: end: 20050306
  5. LANSOPRAZOLE [Concomitant]
     Dosage: DOSE FORM : PERORAL AGENT
     Route: 048
     Dates: end: 20050306
  6. HALCION [Concomitant]
     Route: 048
     Dates: end: 20040726
  7. ZOLPIDEM [Concomitant]
     Route: 048
     Dates: start: 20040727, end: 20050306
  8. MYCOPHENOLATE MEFETIL [Suspect]
     Route: 048
     Dates: start: 20040224, end: 20040524
  9. URSO 250 [Concomitant]
     Dosage: DOSE FORM : PERORAL AGENT NOTE: 1001900 MG
     Route: 048
     Dates: end: 20050306
  10. ETODOLAC [Concomitant]
     Dosage: NOTE: 2002400MG
     Route: 048
     Dates: end: 20050306
  11. MYCOPHENOLATE MEFETIL [Suspect]
     Route: 048
     Dates: start: 20040108, end: 20040121
  12. MYCOPHENOLATE MEFETIL [Suspect]
     Route: 048
     Dates: start: 20040525
  13. MEDROL [Suspect]
     Indication: PROPHYLAXIS AGAINST TRANSPLANT REJECTION
     Dosage: NOTE: 4414 MG
     Route: 048
  14. MYCOPHENOLATE MEFETIL [Suspect]
     Indication: PROPHYLAXIS AGAINST TRANSPLANT REJECTION
     Route: 048
     Dates: start: 20020822, end: 20031128
  15. LAC-B [Concomitant]
     Dosage: ORAL FORMULATION (NOT OTHERWISE SPECIFIED)
     Route: 048
     Dates: end: 20050306

REACTIONS (6)
  - BACK PAIN [None]
  - ABDOMINAL PAIN UPPER [None]
  - EPSTEIN-BARR VIRUS ASSOCIATED LYMPHOPROLIFERATIVE DISORDER [None]
  - CYTOMEGALOVIRUS ENTEROCOLITIS [None]
  - LARGE INTESTINE PERFORATION [None]
  - ARTHRALGIA [None]
